FAERS Safety Report 26064815 (Version 1)
Quarter: 2025Q4

REPORT INFORMATION
  Report Type: Spontaneous
  Country: US (occurrence: US)
  Receive Date: 20251119
  Receipt Date: 20251119
  Transmission Date: 20260118
  Serious: No
  Sender: MYLAN
  Company Number: US-MYLANLABS-2025M1096687

PATIENT
  Sex: Female

DRUGS (1)
  1. LATANOPROST [Suspect]
     Active Substance: LATANOPROST
     Indication: Evidence based treatment
     Dosage: 50 MICROGRAM

REACTIONS (4)
  - Eyelash changes [Unknown]
  - Eye pain [Unknown]
  - Vision blurred [Unknown]
  - Eye irritation [Unknown]
